FAERS Safety Report 14128733 (Version 1)
Quarter: 2017Q4

REPORT INFORMATION
  Report Type: Spontaneous
  Country: US (occurrence: US)
  Receive Date: 20171026
  Receipt Date: 20171026
  Transmission Date: 20180321
  Serious: Yes (Other)
  Sender: FDA-Public Use
  Company Number: None

PATIENT
  Sex: Male
  Weight: 68.4 kg

DRUGS (7)
  1. EXCEDRIN [Concomitant]
     Active Substance: ACETAMINOPHEN\ASPIRIN\CAFFEINE
  2. TRANSDERM SCOP [Suspect]
     Active Substance: SCOPOLAMINE
     Indication: INGUINAL HERNIA REPAIR
     Dates: start: 20171009, end: 20171010
  3. OMEPRAZOLE. [Concomitant]
     Active Substance: OMEPRAZOLE
  4. MULTIVITAMIN [Concomitant]
     Active Substance: VITAMINS
  5. TRANSDERM SCOP [Suspect]
     Active Substance: SCOPOLAMINE
     Indication: NAUSEA
     Dates: start: 20171009, end: 20171010
  6. SINEMET (LEVODOPA/CARBODOPA) [Concomitant]
  7. CPAP [Concomitant]
     Active Substance: DEVICE

REACTIONS (11)
  - Foot fracture [None]
  - Restlessness [None]
  - Disorientation [None]
  - Agitation [None]
  - Hallucination [None]
  - Psychotic disorder [None]
  - Confusional state [None]
  - Pollakiuria [None]
  - Speech disorder [None]
  - Rib fracture [None]
  - Fall [None]

NARRATIVE: CASE EVENT DATE: 20171009
